FAERS Safety Report 14802104 (Version 1)
Quarter: 2018Q2

REPORT INFORMATION
  Report Type: Spontaneous
  Country: US (occurrence: US)
  Receive Date: 20180424
  Receipt Date: 20180424
  Transmission Date: 20180711
  Serious: No
  Sender: FDA-Public Use
  Company Number: US-PURDUE-USA-2011-0064279

PATIENT
  Sex: Male

DRUGS (3)
  1. OXYCODONE HCL CR TABLETS (SIMILAR TO NDA 22-272) [Suspect]
     Active Substance: OXYCODONE HYDROCHLORIDE
     Indication: PAIN
     Dosage: 240 MG, UNK
     Route: 048
  2. OXYCODONE HYDROCHLORIDE. [Suspect]
     Active Substance: OXYCODONE HYDROCHLORIDE
     Indication: PAIN
     Dosage: 240 MG, UNK
     Route: 048
     Dates: start: 1998
  3. OXYCONTIN [Suspect]
     Active Substance: OXYCODONE HYDROCHLORIDE
     Indication: PAIN
     Dosage: 320 MG, BID
     Route: 048
     Dates: start: 1998

REACTIONS (4)
  - Drug withdrawal syndrome [Not Recovered/Not Resolved]
  - Drug effect decreased [Unknown]
  - Cold sweat [Unknown]
  - Pain [Not Recovered/Not Resolved]
